FAERS Safety Report 7620268-8 (Version None)
Quarter: 2011Q3

REPORT INFORMATION
  Report Type: 
  Country: None (occurrence: None)
  Receive Date: 20110719
  Receipt Date: 20110708
  Transmission Date: 20111222
  Serious: Yes (Other)
  Sender: FDA-Public Use
  Company Number: PHHY2011US55712

PATIENT
  Sex: Female
  Weight: 61.678 kg

DRUGS (8)
  1. ANTIHYPERTENSIVES [Concomitant]
  2. HYDROCHLOROTHIAZIDE [Concomitant]
     Indication: EYE SWELLING
  3. GILENYA [Suspect]
     Indication: MULTIPLE SCLEROSIS
     Dosage: 0.5 MG, QD
     Route: 048
     Dates: start: 20110615
  4. BACLOFEN [Concomitant]
     Indication: MUSCLE SPASTICITY
     Dosage: 20 MG, TID
     Route: 048
     Dates: start: 20100701
  5. ERGOTAMINE [Concomitant]
  6. ADDERALL 10 [Concomitant]
     Indication: ATTENTION DEFICIT/HYPERACTIVITY DISORDER
     Dosage: 30 MG, QD
     Route: 048
     Dates: start: 20050101
  7. CYMBALTA [Concomitant]
     Dosage: 60 MG, QD
     Route: 048
     Dates: start: 20080801
  8. VITAMIN B-12 [Concomitant]
     Indication: VITAMIN B12 DEFICIENCY
     Dosage: 1000 UG, QMO
     Route: 030
     Dates: start: 20070701

REACTIONS (3)
  - BLOOD PRESSURE DECREASED [None]
  - HEART RATE DECREASED [None]
  - DIZZINESS POSTURAL [None]
